FAERS Safety Report 8178675-3 (Version None)
Quarter: 2012Q1

REPORT INFORMATION
  Report Type: 
  Country: None (occurrence: None)
  Receive Date: 20120301
  Receipt Date: 20120222
  Transmission Date: 20120608
  Serious: No
  Sender: FDA-Public Use
  Company Number: US-PFIZER INC-2012053846

PATIENT
  Sex: Female
  Weight: 87.075 kg

DRUGS (6)
  1. PRISTIQ [Suspect]
     Indication: PANIC ATTACK
  2. PRISTIQ [Suspect]
     Indication: ROUTINE HEALTH MAINTENANCE
  3. LEVOTHYROXINE SODIUM [Concomitant]
     Indication: THYROID DISORDER
     Dosage: ^50 MG DAILY^
     Dates: start: 20080101
  4. HYDROCODONE [Concomitant]
     Indication: INTERVERTEBRAL DISC DEGENERATION
     Dosage: 10/325 MG
     Dates: start: 19970101
  5. PRISTIQ [Suspect]
     Indication: DEPRESSION
     Dosage: 50 MG, 1X/DAY
     Dates: start: 20100101
  6. NEXIUM [Concomitant]
     Indication: GASTROOESOPHAGEAL REFLUX DISEASE
     Dosage: 40 MG, 1X/DAY
     Dates: start: 20050101

REACTIONS (3)
  - ABDOMINAL DISTENSION [None]
  - CONSTIPATION [None]
  - DRUG INEFFECTIVE [None]
